FAERS Safety Report 20920562 (Version 1)
Quarter: 2022Q2

REPORT INFORMATION
  Report Type: Spontaneous
  Country: US (occurrence: None)
  Receive Date: 20220606
  Receipt Date: 20220606
  Transmission Date: 20220721
  Serious: Yes (Hospitalization)
  Sender: FDA-Public Use
  Company Number: None

PATIENT
  Age: 83 Year
  Sex: Male
  Weight: 82 kg

DRUGS (1)
  1. SULFAMETHOXAZOLE\TRIMETHOPRIM [Suspect]
     Active Substance: SULFAMETHOXAZOLE\TRIMETHOPRIM
     Indication: Arthritis bacterial
     Dosage: FREQUENCY : TWICE A DAY;?
     Route: 048
     Dates: start: 20220316, end: 20220322

REACTIONS (4)
  - Dyspnoea [None]
  - Thrombocytopenia [None]
  - Leukopenia [None]
  - Haemoglobin decreased [None]

NARRATIVE: CASE EVENT DATE: 20220321
